FAERS Safety Report 8566997 (Version 2)
Quarter: 2013Q2

REPORT INFORMATION
  Report Type: Spontaneous
  Country: FR (occurrence: FR)
  Receive Date: 20120517
  Receipt Date: 20130411
  Transmission Date: 20140414
  Serious: Yes (Other)
  Sender: FDA-Public Use
  Company Number: PHHY2012FR040976

PATIENT
  Age: 4 Year
  Sex: Male

DRUGS (7)
  1. AMLODIPINE [Suspect]
     Indication: HYPERTENSION
     Dosage: 0.5 MG/KG/DAY
     Dates: start: 200910
  2. PROGRAF [Interacting]
     Indication: RENAL FAILURE CHRONIC
     Dates: start: 200810
  3. ADVAGRAF [Interacting]
     Indication: RENAL FAILURE CHRONIC
     Dosage: 2.5 MG, UNK
  4. ADVAGRAF [Interacting]
     Dosage: 2 MG, UNK
  5. MYCOPHENOLATE MOFETIL [Concomitant]
     Indication: RENAL FAILURE CHRONIC
     Dates: start: 200810
  6. PREDNISONE [Concomitant]
     Indication: RENAL FAILURE CHRONIC
     Dates: start: 200810
  7. ENALAPRIL [Concomitant]
     Indication: HYPERTENSION
     Dosage: 0.5 MG/KG, PER DAY

REACTIONS (3)
  - Blood creatinine increased [Unknown]
  - Immunosuppressant drug level increased [Unknown]
  - Drug interaction [Unknown]
